FAERS Safety Report 13655111 (Version 1)
Quarter: 2017Q2

REPORT INFORMATION
  Report Type: Spontaneous
  Country: US (occurrence: US)
  Receive Date: 20170614
  Receipt Date: 20170614
  Transmission Date: 20170830
  Serious: No
  Sender: FDA-Public Use
  Company Number: None

PATIENT
  Age: 34 Year
  Sex: Female

DRUGS (1)
  1. HUMIRA [Suspect]
     Active Substance: ADALIMUMAB
     Indication: PSORIASIS
     Dosage: 80MG DAY 1, 40MG DAY 8 THEN 40MJG, DAY 1, 8 AND 22
     Route: 058
     Dates: start: 20170410

REACTIONS (1)
  - Hypersensitivity [None]
